FAERS Safety Report 9668451 (Version 9)
Quarter: 2019Q4

REPORT INFORMATION
  Report Type: Report from Study
  Country: CA (occurrence: CA)
  Receive Date: 20131105
  Receipt Date: 20191227
  Transmission Date: 20200122
  Serious: Yes (Hospitalization, Other)
  Sender: FDA-Public Use
  Company Number: CA-ROCHE-1299207

PATIENT
  Age: 74 Year
  Sex: Male
  Weight: 80.7 kg

DRUGS (22)
  1. RITUXAN [Suspect]
     Active Substance: RITUXIMAB
     Indication: RHEUMATOID ARTHRITIS
     Route: 042
     Dates: start: 20110321
  2. RITUXAN [Suspect]
     Active Substance: RITUXIMAB
     Dosage: START DATE-UNKNOWN
     Route: 042
  3. SYMBICORT [Concomitant]
     Active Substance: BUDESONIDE\FORMOTEROL FUMARATE DIHYDRATE
     Dosage: 1 PUFF 2X DAY
     Route: 065
  4. TYLENOL [Concomitant]
     Active Substance: ACETAMINOPHEN
     Indication: PREMEDICATION
     Route: 048
     Dates: start: 20110913
  5. METHYLPREDNISOLONE. [Concomitant]
     Active Substance: METHYLPREDNISOLONE
     Route: 042
  6. RITUXAN [Suspect]
     Active Substance: RITUXIMAB
     Route: 042
     Dates: start: 20191204
  7. PLAQUENIL [Concomitant]
     Active Substance: HYDROXYCHLOROQUINE SULFATE
  8. ASPIRIN [ACETYLSALICYLIC ACID] [Concomitant]
     Active Substance: ASPIRIN
  9. DIPHENHYDRAMINE HCL [Concomitant]
     Active Substance: DIPHENHYDRAMINE HYDROCHLORIDE
     Route: 048
  10. LOSARTAN. [Concomitant]
     Active Substance: LOSARTAN
  11. ACETAMINOPHEN. [Concomitant]
     Active Substance: ACETAMINOPHEN
     Route: 048
  12. PROPRANOLOL [Concomitant]
     Active Substance: PROPRANOLOL HYDROCHLORIDE
  13. BENADRYL [Concomitant]
     Active Substance: DIPHENHYDRAMINE HYDROCHLORIDE
     Indication: PREMEDICATION
     Route: 048
     Dates: start: 20110913
  14. WARFARIN [Concomitant]
     Active Substance: WARFARIN
  15. NASACORT [Concomitant]
     Active Substance: TRIAMCINOLONE ACETONIDE
  16. RITUXAN [Suspect]
     Active Substance: RITUXIMAB
     Dosage: THIS IS 23 INFUSION?NEXT INFUSION WAS SCHEDULED ON 01/AUG/2017
     Route: 042
     Dates: start: 20170718
  17. METOPROLOL. [Concomitant]
     Active Substance: METOPROLOL
  18. RITUXAN [Suspect]
     Active Substance: RITUXIMAB
     Dosage: RETREATMENT
     Route: 042
     Dates: start: 20110913
  19. LIPITOR [Concomitant]
     Active Substance: ATORVASTATIN CALCIUM
  20. AMLODIPINE [Concomitant]
     Active Substance: AMLODIPINE BESYLATE
     Indication: BLOOD PRESSURE MEASUREMENT
     Route: 065
     Dates: start: 20161024
  21. CARVEDILOL. [Concomitant]
     Active Substance: CARVEDILOL
     Route: 065
  22. ATROVENT [Concomitant]
     Active Substance: IPRATROPIUM BROMIDE

REACTIONS (15)
  - Dyslipidaemia [Unknown]
  - Aortic aneurysm [Not Recovered/Not Resolved]
  - Weight increased [Unknown]
  - Body temperature decreased [Unknown]
  - Intentional product use issue [Unknown]
  - Fatigue [Recovering/Resolving]
  - Influenza [Unknown]
  - Bronchitis [Recovered/Resolved]
  - Viral sinusitis [Not Recovered/Not Resolved]
  - Hydrocephalus [Unknown]
  - Blood pressure increased [Unknown]
  - Oxygen saturation decreased [Unknown]
  - Heart rate decreased [Unknown]
  - Off label use [Unknown]
  - Amnesia [Unknown]

NARRATIVE: CASE EVENT DATE: 2014
